FAERS Safety Report 26149576 (Version 1)
Quarter: 2025Q4

REPORT INFORMATION
  Report Type: Report from Study
  Country: US (occurrence: US)
  Receive Date: 20251212
  Receipt Date: 20251212
  Transmission Date: 20260118
  Serious: Yes (Other)
  Sender: ROCHE
  Company Number: US-ROCHE-10000438875

PATIENT
  Age: 63 Year
  Sex: Male

DRUGS (18)
  1. ROZLYTREK [Suspect]
     Active Substance: ENTRECTINIB
     Indication: Brain neoplasm malignant
     Dosage: TAKE 3 CAPSULES BY MOUTH (600MG) EVERY DAY
     Route: 048
     Dates: start: 20250822
  2. ROZLYTREK [Suspect]
     Active Substance: ENTRECTINIB
     Indication: Prostatic specific antigen increased
  3. ROZLYTREK [Suspect]
     Active Substance: ENTRECTINIB
     Indication: Hypospadias
  4. ROZLYTREK [Suspect]
     Active Substance: ENTRECTINIB
     Indication: White blood cell count decreased
  5. ROZLYTREK [Suspect]
     Active Substance: ENTRECTINIB
     Indication: Seizure
  6. ROZLYTREK [Suspect]
     Active Substance: ENTRECTINIB
     Indication: Adverse drug reaction
  7. DEXAMETHASONE 2mg tablet [Concomitant]
     Dosage: TAKE 1 TABLET
     Route: 048
     Dates: start: 20251007
  8. FAMOTIDINE [Concomitant]
     Active Substance: FAMOTIDINE
     Dosage: 3 REFILL
     Route: 048
     Dates: start: 20250811
  9. LEVETIRACETAM [Concomitant]
     Active Substance: LEVETIRACETAM
     Route: 048
     Dates: start: 20251027
  10. LIDOCAINE 2% gel [Concomitant]
     Dosage: INSERT 5 ML IN URETHRA
  11. ONDANSETRON [Concomitant]
     Active Substance: ONDANSETRON
     Dosage: 30 MINUTES BEFORE CHEMOTHERAPY AND EVERY 8 HRS AS NEEDED  FOR NAUSEA
     Route: 048
  12. POLYETHYLENE GLYCOL 1000 POWD [Concomitant]
     Route: 048
  13. SENNOSIDES 8.6 mg CAP [Concomitant]
     Dosage: TAKE 2CAPSULE
     Route: 048
     Dates: start: 20240730
  14. TAMSULOSIN HYDROCHLORIDE [Concomitant]
     Active Substance: TAMSULOSIN HYDROCHLORIDE
     Route: 048
  15. ACETAMINOPHEN [Concomitant]
     Active Substance: ACETAMINOPHEN
  16. CYANOCOBALAMIN [Concomitant]
     Active Substance: CYANOCOBALAMIN
  17. ERGOCALCIFEROL [Concomitant]
     Active Substance: ERGOCALCIFEROL
  18. PROCHLORPERAZINE [Concomitant]
     Active Substance: PROCHLORPERAZINE

REACTIONS (2)
  - Off label use [Unknown]
  - Neoplasm progression [Not Recovered/Not Resolved]

NARRATIVE: CASE EVENT DATE: 20251113
